FAERS Safety Report 7645849-7 (Version None)
Quarter: 2011Q3

REPORT INFORMATION
  Report Type: 
  Country: None (occurrence: None)
  Receive Date: 20110729
  Receipt Date: 20110725
  Transmission Date: 20111222
  Serious: Yes (Other)
  Sender: FDA-Public Use
  Company Number: JP-ABBOTT-11P-087-0842338-00

PATIENT
  Age: 66 Year
  Sex: Female
  Weight: 70 kg

DRUGS (8)
  1. LANSOPRAZOLE [Concomitant]
     Indication: PRODUCT USED FOR UNKNOWN INDICATION
     Route: 048
  2. CAMOSTATE [Concomitant]
     Indication: PRODUCT USED FOR UNKNOWN INDICATION
     Route: 048
  3. GASCON [Concomitant]
     Indication: PRODUCT USED FOR UNKNOWN INDICATION
     Route: 048
  4. PANCREAZE [Concomitant]
     Indication: PRODUCT USED FOR UNKNOWN INDICATION
     Route: 048
  5. URSO 250 [Concomitant]
     Indication: PRODUCT USED FOR UNKNOWN INDICATION
     Route: 048
  6. CLARITHROMYCIN [Suspect]
     Indication: ASTHMA
     Route: 048
     Dates: start: 20110707, end: 20110712
  7. GOREISAN (HERBAL MEDICATION) [Concomitant]
     Indication: PRODUCT USED FOR UNKNOWN INDICATION
  8. BOFUTSUGHOSAN (HERBAL MEDICATION) [Concomitant]
     Indication: PRODUCT USED FOR UNKNOWN INDICATION

REACTIONS (4)
  - ECZEMA [None]
  - ABDOMINAL PAIN UPPER [None]
  - EYELID OEDEMA [None]
  - ABDOMINAL DISCOMFORT [None]
